FAERS Safety Report 6594739-X (Version None)
Quarter: 2010Q1

REPORT INFORMATION
  Report Type: 
  Country: None (occurrence: None)
  Receive Date: 20100222
  Receipt Date: 20100211
  Transmission Date: 20100710
  Serious: Yes (Other)
  Sender: FDA-Public Use
  Company Number: DE-AMGEN-US389191

PATIENT
  Age: 65 Year
  Sex: Male

DRUGS (6)
  1. ENBREL [Suspect]
     Indication: RHEUMATOID ARTHRITIS
     Route: 058
     Dates: start: 20080501, end: 20080918
  2. ENBREL [Suspect]
     Route: 058
     Dates: start: 20070424, end: 20070802
  3. ENBREL [Suspect]
     Route: 058
     Dates: start: 20090714
  4. PREDNISOLONE [Concomitant]
     Route: 048
  5. NOVALGIN [Concomitant]
     Route: 048
  6. METHOTREXATE [Concomitant]
     Dosage: 7.5 MG, FREQUENCY UNKNOWN
     Route: 048
     Dates: start: 20070801, end: 20080901

REACTIONS (2)
  - DYSPHAGIA [None]
  - LARYNGEAL DISORDER [None]
